FAERS Safety Report 8909498 (Version 1)
Quarter: 2012Q4

REPORT INFORMATION
  Report Type: 
  Country: None (occurrence: JP)
  Receive Date: 20121114
  Receipt Date: 20121114
  Transmission Date: 20130627
  Serious: Yes (Death, Other)
  Sender: FDA-Public Use
  Company Number: JP-OTSUKA-US-2012-11660

PATIENT
  Age: 67 Year
  Sex: Female

DRUGS (11)
  1. BUSULFEX [Suspect]
     Indication: CHEMOTHERAPY
     Dosage: UNK
     Route: 041
  2. CYCLOPHOSPHAMIDE [Concomitant]
     Indication: CHEMOTHERAPY
  3. DAUNORUBICIN HCL [Concomitant]
     Indication: CHEMOTHERAPY
  4. VINCRISTINE SULFATE [Concomitant]
     Indication: CHEMOTHERAPY
  5. IMATINIB [Concomitant]
     Indication: CHEMOTHERAPY
  6. PREDNISOLONE [Concomitant]
  7. METHOTREXATE SODIUM [Concomitant]
     Indication: CHEMOTHERAPY
  8. ARA-C [Concomitant]
  9. METHYLPREDNISOLONE [Concomitant]
  10. FLUDARABINE PHOSPHATE [Concomitant]
     Indication: CHEMOTHERAPY
     Dosage: UNK
     Route: 065
  11. DASATINIB [Concomitant]

REACTIONS (4)
  - Graft versus host disease [Fatal]
  - Septic shock [None]
  - Pulmonary alveolar haemorrhage [None]
  - Cytomegalovirus test positive [None]
